FAERS Safety Report 7282983-8 (Version None)
Quarter: 2011Q1

REPORT INFORMATION
  Report Type: 
  Country: None (occurrence: None)
  Receive Date: 20110209
  Receipt Date: 20110128
  Transmission Date: 20110831
  Serious: Yes (Hospitalization)
  Sender: FDA-Public Use
  Company Number: JP-JNJFOC-20101202403

PATIENT
  Sex: Male
  Weight: 72 kg

DRUGS (7)
  1. METOLATE [Suspect]
     Indication: RHEUMATOID ARTHRITIS
     Route: 048
  2. REMICADE [Suspect]
     Route: 042
  3. SALAZOSULFAPYRIDINE [Concomitant]
     Route: 048
  4. REMICADE [Suspect]
     Route: 042
  5. REMICADE [Suspect]
     Route: 042
  6. METHOTREXATE [Concomitant]
     Indication: RHEUMATOID ARTHRITIS
     Route: 048
  7. REMICADE [Suspect]
     Indication: RHEUMATOID ARTHRITIS
     Dosage: 8 INFUSIONS ON UNPSECIFIED DATES
     Route: 042

REACTIONS (4)
  - CLAVICLE FRACTURE [None]
  - ENDOCARDITIS BACTERIAL [None]
  - FALL [None]
  - STREPTOCOCCAL INFECTION [None]
